FAERS Safety Report 12466723 (Version 2)
Quarter: 2016Q4

REPORT INFORMATION
  Report Type: Spontaneous
  Country: GB (occurrence: GB)
  Receive Date: 20160615
  Receipt Date: 20161117
  Transmission Date: 20170207
  Serious: Yes (Other)
  Sender: FDA-Public Use
  Company Number: GB-AUROBINDO-AUR-APL-2016-07445

PATIENT
  Age: 54 Year
  Sex: Female
  Weight: 81 kg

DRUGS (2)
  1. PROCHLORPERAZINE. [Concomitant]
     Active Substance: PROCHLORPERAZINE
     Indication: PRODUCT USED FOR UNKNOWN INDICATION
     Dosage: 1 DF, 3 TIMES A DAY
     Route: 065
     Dates: start: 20160429, end: 20160506
  2. FLUOXETINE [Suspect]
     Active Substance: FLUOXETINE HYDROCHLORIDE
     Indication: OFF LABEL USE
     Dosage: 20 MG, UNK
     Route: 048
     Dates: start: 20160518, end: 20160518

REACTIONS (8)
  - Burning sensation [Recovered/Resolved]
  - Throat tightness [Recovered/Resolved]
  - Pruritus [Recovered/Resolved]
  - Urticaria [Recovered/Resolved]
  - Dry skin [Recovered/Resolved]
  - Skin hyperpigmentation [Recovered/Resolved]
  - Rash erythematous [Recovered/Resolved]
  - Pallor [Recovered/Resolved]

NARRATIVE: CASE EVENT DATE: 20160518
